FAERS Safety Report 5320167-0 (Version None)
Quarter: 2007Q2

REPORT INFORMATION
  Report Type: 
  Country: None (occurrence: None)
  Receive Date: 20070503
  Receipt Date: 20070423
  Transmission Date: 20071010
  Serious: Yes (Hospitalization, Other)
  Sender: FDA-Public Use
  Company Number: 163-21880-07010006

PATIENT
  Age: 71 Year
  Sex: Male

DRUGS (18)
  1. REVLIMID [Suspect]
     Indication: MYELODYSPLASTIC SYNDROME
     Dosage: SEE IMAGE
     Route: 048
     Dates: start: 20061220, end: 20070103
  2. REVLIMID [Suspect]
     Indication: MYELODYSPLASTIC SYNDROME
     Dosage: SEE IMAGE
     Route: 048
     Dates: start: 20061115, end: 20070110
  3. REVLIMID [Suspect]
     Indication: MYELODYSPLASTIC SYNDROME
     Dosage: SEE IMAGE
     Route: 048
     Dates: start: 20061114
  4. REVLIMID [Suspect]
     Indication: MYELODYSPLASTIC SYNDROME
     Dosage: SEE IMAGE
     Route: 048
     Dates: start: 20070131
  5. REVLIMID [Suspect]
     Indication: MYELODYSPLASTIC SYNDROME
     Dosage: SEE IMAGE
     Route: 048
     Dates: start: 20070314
  6. REVLIMID [Suspect]
     Indication: MULTIPLE MYELOMA
  7. VITAMIN B6 [Concomitant]
  8. COUMADIN [Concomitant]
  9. TOPROL-XL [Concomitant]
  10. HYZAAR [Concomitant]
  11. PROCRIT [Concomitant]
  12. ACIPHEX [Concomitant]
  13. BACTRIM [Concomitant]
  14. ZOLOFT [Concomitant]
  15. PLATIL (CISPLATIN) [Concomitant]
  16. CRESTON (ROSUVASTATIN CALCIUM) [Concomitant]
  17. AMBIEN [Concomitant]
  18. NEUPOGEN [Concomitant]

REACTIONS (13)
  - ATRIOVENTRICULAR BLOCK FIRST DEGREE [None]
  - DRY SKIN [None]
  - DYSPNOEA [None]
  - FUNGAL RASH [None]
  - HEADACHE [None]
  - HEART RATE DECREASED [None]
  - HYPOAESTHESIA [None]
  - HYPOTENSION [None]
  - LOSS OF CONSCIOUSNESS [None]
  - NERVOUSNESS [None]
  - PAIN IN EXTREMITY [None]
  - PLATELET COUNT DECREASED [None]
  - PRURITUS [None]
